FAERS Safety Report 14774692 (Version 1)
Quarter: 2018Q2

REPORT INFORMATION
  Report Type: Spontaneous
  Country: US (occurrence: US)
  Receive Date: 20180418
  Receipt Date: 20180418
  Transmission Date: 20180711
  Serious: Yes (Other)
  Sender: FDA-Public Use
  Company Number: US-ASTELLAS-2017US033840

PATIENT
  Sex: Female

DRUGS (4)
  1. AMINOPHYLLINE. [Suspect]
     Active Substance: AMINOPHYLLINE
     Indication: PRODUCT USED FOR UNKNOWN INDICATION
     Dosage: UNK UNK, UNKNOWN FREQ.
     Route: 065
  2. LEXISCAN [Suspect]
     Active Substance: REGADENOSON
     Indication: CARDIAC STRESS TEST
     Dosage: UNK UNK, UNKNOWN FREQ.
     Route: 065
     Dates: start: 201704
  3. LEXISCAN [Suspect]
     Active Substance: REGADENOSON
     Dosage: UNK, UNKNOWN FREQ.
     Route: 065
     Dates: start: 201705
  4. LEXISCAN [Suspect]
     Active Substance: REGADENOSON
     Dosage: UNK, UNKNOWN FREQ.
     Route: 065
     Dates: start: 201707

REACTIONS (1)
  - Cardiac arrest [Unknown]
